FAERS Safety Report 4800244-0 (Version None)
Quarter: 2005Q4

REPORT INFORMATION
  Report Type: 
  Country: None (occurrence: None)
  Receive Date: 20051017
  Receipt Date: 20041019
  Transmission Date: 20060501
  Serious: No
  Sender: FDA-Public Use
  Company Number: US-GLAXOSMITHKLINE-A0530379A

PATIENT
  Sex: Female

DRUGS (2)
  1. CEFTIN [Suspect]
     Indication: LYME DISEASE
     Dosage: 250MG TWICE PER DAY
     Route: 048
     Dates: start: 20030301
  2. ZITHROMAX [Concomitant]

REACTIONS (2)
  - PHARMACEUTICAL PRODUCT COMPLAINT [None]
  - VOMITING [None]
